FAERS Safety Report 20756392 (Version 1)
Quarter: 2022Q2

REPORT INFORMATION
  Report Type: Spontaneous
  Country: US (occurrence: US)
  Receive Date: 20220427
  Receipt Date: 20220427
  Transmission Date: 20220720
  Serious: No
  Sender: FDA-Public Use
  Company Number: US-009507513-2204USA001320

PATIENT
  Sex: Male

DRUGS (4)
  1. PRINIVIL [Suspect]
     Active Substance: LISINOPRIL
     Indication: Hypertension
     Dosage: 10 MG, UNK; DATES OF USE REPORTED AS ABOUT 15-20 YEARS AGO TO THE PRESENT
     Route: 048
  2. PRINIVIL [Suspect]
     Active Substance: LISINOPRIL
     Dosage: 12.5 MG, UNK; DATES OF USE REPORTED AS ABOUT 15-20 YEARS AGO TO THE PRESENT
     Route: 048
  3. ASPIRIN [Suspect]
     Active Substance: ASPIRIN
     Indication: Osteoarthritis
     Dosage: 81 MG, UNK
     Dates: start: 20170925
  4. COREG [Concomitant]
     Active Substance: CARVEDILOL
     Indication: Hypertension
     Dosage: 3.125 MG, UNK; DATES OF USE REPORTED AS ABOUT 15-20 YEARS AGO TO THE PRESENT

REACTIONS (1)
  - Labelled drug-drug interaction issue [Unknown]

NARRATIVE: CASE EVENT DATE: 20170925
